FAERS Safety Report 4591923-1 (Version None)
Quarter: 2005Q1

REPORT INFORMATION
  Report Type: 
  Country: None (occurrence: None)
  Receive Date: 20050222
  Receipt Date: 20050211
  Transmission Date: 20050727
  Serious: Yes (Other)
  Sender: FDA-Public Use
  Company Number: 200510630BCC

PATIENT
  Sex: Male
  Weight: 91.6266 kg

DRUGS (4)
  1. ALEVE [Suspect]
     Indication: MYALGIA
     Dosage: 220 MG , PRN, ORAL
     Route: 048
  2. DIGOXIN [Concomitant]
  3. VERAPAMIL [Concomitant]
  4. SYNTHROID [Concomitant]

REACTIONS (1)
  - ATRIAL FIBRILLATION [None]
